FAERS Safety Report 13916347 (Version 5)
Quarter: 2018Q1

REPORT INFORMATION
  Report Type: Spontaneous
  Country: US (occurrence: US)
  Receive Date: 20170829
  Receipt Date: 20180307
  Transmission Date: 20180508
  Serious: Yes (Hospitalization, Disabling, Other)
  Sender: FDA-Public Use
  Company Number: US-009507513-1708USA012006

PATIENT
  Sex: Female
  Weight: 67.45 kg

DRUGS (4)
  1. NUVARING [Suspect]
     Active Substance: ETHINYL ESTRADIOL\ETONOGESTREL
     Dosage: 1 DF, UNK
     Route: 067
     Dates: start: 2005, end: 2006
  2. NUVARING [Suspect]
     Active Substance: ETHINYL ESTRADIOL\ETONOGESTREL
     Dosage: 1 DF, UNK
     Route: 067
     Dates: start: 2009, end: 2011
  3. NUVARING [Suspect]
     Active Substance: ETHINYL ESTRADIOL\ETONOGESTREL
     Dosage: 1 DF, UNK
     Route: 067
     Dates: start: 2000, end: 2003
  4. NUVARING [Suspect]
     Active Substance: ETHINYL ESTRADIOL\ETONOGESTREL
     Indication: CONTRACEPTION
     Dosage: 1 DF, UNK
     Route: 067
     Dates: start: 201507, end: 20150915

REACTIONS (27)
  - Pulmonary embolism [Unknown]
  - Back pain [Unknown]
  - Anxiety [Not Recovered/Not Resolved]
  - Alopecia [Unknown]
  - Attention deficit/hyperactivity disorder [Unknown]
  - Cough [Unknown]
  - Pain in extremity [Unknown]
  - Fatigue [Not Recovered/Not Resolved]
  - Cervical dysplasia [Recovered/Resolved]
  - Hypoaesthesia [Unknown]
  - Synovial cyst [Unknown]
  - Presyncope [Unknown]
  - Chest pain [Unknown]
  - Neutropenia [Unknown]
  - Dizziness [Unknown]
  - Back pain [Unknown]
  - Migraine [Unknown]
  - Post-traumatic stress disorder [Not Recovered/Not Resolved]
  - Vaginal haemorrhage [Unknown]
  - Depression [Unknown]
  - Constipation [Unknown]
  - Deep vein thrombosis [Unknown]
  - Asthma [Unknown]
  - Alcohol abuse [Unknown]
  - Knee operation [Unknown]
  - Nausea [Unknown]
  - Weight increased [Unknown]

NARRATIVE: CASE EVENT DATE: 2006
